FAERS Safety Report 4952331-4 (Version None)
Quarter: 2006Q1

REPORT INFORMATION
  Report Type: 
  Country: None (occurrence: None)
  Receive Date: 20060323
  Receipt Date: 20050705
  Transmission Date: 20060701
  Serious: Yes (Hospitalization)
  Sender: FDA-Public Use
  Company Number: FR-AVENTIS-200512255FR

PATIENT
  Age: 85 Year
  Sex: Male

DRUGS (9)
  1. KETEK [Suspect]
     Indication: PNEUMONIA
     Route: 048
     Dates: start: 20050607, end: 20050614
  2. PLAVIX [Concomitant]
  3. ASPEGIC [Concomitant]
  4. LEXOMIL [Concomitant]
  5. COZAAR [Concomitant]
  6. LASILIX [Concomitant]
  7. OMEPRAZOLE [Concomitant]
  8. DI-ANTALVIC [Concomitant]
     Indication: PNEUMONIA
  9. AMOXICILLIN [Concomitant]
     Indication: PNEUMONIA
     Dates: start: 20050614, end: 20050621

REACTIONS (5)
  - BLOOD ALKALINE PHOSPHATASE INCREASED [None]
  - CHOLESTASIS [None]
  - FATIGUE [None]
  - GAMMA-GLUTAMYLTRANSFERASE INCREASED [None]
  - GENERAL PHYSICAL HEALTH DETERIORATION [None]
